FAERS Safety Report 9312772 (Version 2)
Quarter: 2013Q4

REPORT INFORMATION
  Report Type: Spontaneous
  Country: US (occurrence: US)
  Receive Date: 20130528
  Receipt Date: 20131108
  Transmission Date: 20140711
  Serious: Yes (Death, Hospitalization)
  Sender: FDA-Public Use
  Company Number: US-B.I. PHARMACEUTICALS,INC./RIDGEFIELD-2013-BI-14583BP

PATIENT
  Age: 76 Year
  Sex: Male
  Weight: 68.04 kg

DRUGS (9)
  1. PRADAXA [Suspect]
     Indication: ANTICOAGULANT THERAPY
     Dosage: 300 MG
     Route: 048
     Dates: start: 20120803, end: 20120820
  2. BUSPIRONE [Concomitant]
     Indication: ANXIETY
     Route: 048
  3. PREVACID [Concomitant]
  4. PROMETHAZINE [Concomitant]
     Indication: NAUSEA
     Route: 048
  5. PROMETHAZINE [Concomitant]
     Indication: VOMITING
  6. MECLIZINE [Concomitant]
     Indication: DIZZINESS
     Route: 048
  7. SEPTRA DS [Concomitant]
     Route: 048
  8. COREG [Concomitant]
     Dosage: 50 MG
     Route: 048
  9. ATORVASTATIN [Concomitant]
     Dosage: 20 MG

REACTIONS (5)
  - Acute respiratory failure [Fatal]
  - Fluid overload [Fatal]
  - Gastrointestinal haemorrhage [Recovered/Resolved]
  - Haemorrhagic anaemia [Unknown]
  - Haematemesis [Unknown]
